FAERS Safety Report 9799999 (Version 2)
Quarter: 2015Q3

REPORT INFORMATION
  Report Type: Spontaneous
  Country: US (occurrence: US)
  Receive Date: 20140106
  Receipt Date: 20150806
  Transmission Date: 20151125
  Serious: Yes (Hospitalization)
  Sender: FDA-Public Use
  Company Number: US-GILEAD-2010-0030770

PATIENT
  Age: 73 Year
  Sex: Male

DRUGS (15)
  1. PREVACID [Concomitant]
     Active Substance: LANSOPRAZOLE
  2. FERROUS SULFATE [Concomitant]
     Active Substance: FERROUS SULFATE\FERROUS SULFATE, DRIED
  3. ASPIRIN. [Concomitant]
     Active Substance: ASPIRIN
  4. ADVAIR HFA [Concomitant]
     Active Substance: FLUTICASONE PROPIONATE\SALMETEROL XINAFOATE
  5. LETAIRIS [Suspect]
     Active Substance: AMBRISENTAN
     Indication: PULMONARY ARTERIAL HYPERTENSION
     Route: 048
     Dates: start: 20080924
  6. LASIX [Concomitant]
     Active Substance: FUROSEMIDE
  7. TRANDOLAPRIL. [Concomitant]
     Active Substance: TRANDOLAPRIL
  8. COREG [Concomitant]
     Active Substance: CARVEDILOL
  9. CRESTOR [Concomitant]
     Active Substance: ROSUVASTATIN CALCIUM
  10. PREDNISONE. [Concomitant]
     Active Substance: PREDNISONE
  11. NORVASC [Concomitant]
     Active Substance: AMLODIPINE BESYLATE
  12. ZETIA [Concomitant]
     Active Substance: EZETIMIBE
  13. REVATIO [Concomitant]
     Active Substance: SILDENAFIL CITRATE
  14. PERFORMIST [Concomitant]
  15. AVANDIA [Concomitant]
     Active Substance: ROSIGLITAZONE MALEATE

REACTIONS (1)
  - Haemoglobin decreased [Unknown]
